FAERS Safety Report 9774287 (Version 1)
Quarter: 2013Q4

REPORT INFORMATION
  Report Type: Spontaneous
  Country: US (occurrence: US)
  Receive Date: 20131220
  Receipt Date: 20131220
  Transmission Date: 20140711
  Serious: Yes (Hospitalization)
  Sender: FDA-Public Use
  Company Number: US-MYLANLABS-2013S1027697

PATIENT
  Age: 29 Year
  Sex: Male

DRUGS (1)
  1. METHOTREXATE [Suspect]
     Indication: PSORIASIS
     Dosage: SPLIT TEST DOSAGE OF METHOTREXATE: 2.5MG FOLLOWED BY 2.5MG 12H LATER
     Route: 065

REACTIONS (2)
  - Dermatitis bullous [Recovering/Resolving]
  - Leukocytosis [Recovering/Resolving]
